FAERS Safety Report 5837469-1 (Version None)
Quarter: 2008Q3

REPORT INFORMATION
  Report Type: 
  Country: None (occurrence: None)
  Receive Date: 20080807
  Receipt Date: 20080804
  Transmission Date: 20090109
  Serious: Yes (Hospitalization)
  Sender: FDA-Public Use
  Company Number: US-ELI_LILLY_AND_COMPANY-US200807003669

PATIENT
  Sex: Female
  Weight: 142.86 kg

DRUGS (24)
  1. BYETTA [Suspect]
     Indication: TYPE 2 DIABETES MELLITUS
     Dosage: 5 UG, 2/D
     Route: 058
     Dates: start: 20050601, end: 20060101
  2. BYETTA [Suspect]
     Dosage: 10 UG, 2/D
     Dates: start: 20060101
  3. CLONIDINE [Concomitant]
     Dosage: 0.1 MG, 2/D
     Dates: end: 20080601
  4. DIOVAN [Concomitant]
     Indication: HYPERTENSION
     Dosage: 160 MG, 2/D
     Route: 048
     Dates: start: 20071101
  5. OMEPRAZOLE [Concomitant]
     Dosage: 20 MG, 2/D
     Route: 048
  6. GLUCOPHAGE [Concomitant]
     Dates: start: 20080101
  7. LEVOTHYROXINE SODIUM [Concomitant]
     Indication: HYPOTHYROIDISM
     Dosage: 125 MG, DAILY (1/D)
     Route: 048
     Dates: start: 19580101
  8. PLAVIX [Concomitant]
     Dosage: 75 MG, DAILY (1/D)
     Route: 048
  9. WARFARIN SODIUM [Concomitant]
     Dosage: 15 MG, 3/D
  10. MUCINEX [Concomitant]
     Dosage: 600 MG, 2/D
     Route: 048
  11. SINGULAIR [Concomitant]
  12. DEMADEX [Concomitant]
     Indication: POLYURIA
     Dosage: 100 MG, DAILY (1/D)
     Route: 048
  13. LEVEMIR [Concomitant]
     Indication: TYPE 2 DIABETES MELLITUS
     Dosage: 60 U, EACH EVENING
  14. HUMALOG [Concomitant]
     Indication: TYPE 2 DIABETES MELLITUS
  15. KLOR-CON [Concomitant]
     Indication: BLOOD POTASSIUM
     Dosage: 20 MEQ, 3/D
     Route: 048
  16. GABAPENTIN [Concomitant]
     Indication: RESTLESS LEGS SYNDROME
     Dosage: 300 MG, 3/D
     Route: 048
  17. CARTIA XT [Concomitant]
     Dosage: 120 MG, 2/D
     Route: 048
  18. REQUIP [Concomitant]
     Indication: RESTLESS LEGS SYNDROME
     Dosage: 1 MG, EACH EVENING
     Route: 048
  19. FISH OIL [Concomitant]
  20. MULTI-VITAMIN [Concomitant]
  21. VITAMIN B COMPLEX [Concomitant]
  22. TYLENOL PM [Concomitant]
  23. ANTI-DIABETICS [Concomitant]
     Dosage: 50 MG, 4/D
     Route: 048
     Dates: start: 20080101
  24. METOLAZONE [Concomitant]
     Dosage: 2.5 MG, UNK
     Route: 048

REACTIONS (11)
  - ARTERIOSCLEROSIS [None]
  - CHEST PAIN [None]
  - CHRONIC OBSTRUCTIVE PULMONARY DISEASE [None]
  - GOUT [None]
  - HUNGER [None]
  - INJECTION SITE HAEMORRHAGE [None]
  - OBESITY [None]
  - PAIN [None]
  - SLEEP APNOEA SYNDROME [None]
  - SOMNOLENCE [None]
  - SWELLING [None]
